FAERS Safety Report 16636235 (Version 1)
Quarter: 2019Q3

REPORT INFORMATION
  Report Type: Report from Study
  Country: US (occurrence: US)
  Receive Date: 20190726
  Receipt Date: 20190726
  Transmission Date: 20191004
  Serious: No
  Sender: FDA-Public Use
  Company Number: US-ALEXION PHARMACEUTICALS INC.-A201910934

PATIENT
  Sex: Male

DRUGS (1)
  1. SOLIRIS [Suspect]
     Active Substance: ECULIZUMAB
     Indication: PAROXYSMAL NOCTURNAL HAEMOGLOBINURIA
     Dosage: UNK, Q2W
     Route: 042

REACTIONS (9)
  - Eye pain [Not Recovered/Not Resolved]
  - Eye infection [Not Recovered/Not Resolved]
  - Lacrimal disorder [Not Recovered/Not Resolved]
  - Eye inflammation [Not Recovered/Not Resolved]
  - Headache [Not Recovered/Not Resolved]
  - Meibomian gland dysfunction [Not Recovered/Not Resolved]
  - Blepharitis [Not Recovered/Not Resolved]
  - Eye disorder [Not Recovered/Not Resolved]
  - Dry eye [Not Recovered/Not Resolved]
